FAERS Safety Report 4498621-3 (Version None)
Quarter: 2004Q4

REPORT INFORMATION
  Report Type: 
  Country: None (occurrence: None)
  Receive Date: 20041111
  Receipt Date: 20041021
  Transmission Date: 20050328
  Serious: Yes (Hospitalization)
  Sender: FDA-Public Use
  Company Number: JP-JNJFOC-20040202203

PATIENT
  Sex: Female

DRUGS (32)
  1. REMICADE [Suspect]
     Route: 042
  2. REMICADE [Suspect]
     Route: 042
  3. REMICADE [Suspect]
     Route: 042
  4. REMICADE [Suspect]
     Route: 042
  5. REMICADE [Suspect]
     Indication: RHEUMATOID ARTHRITIS
     Dosage: 3 MG/KG
     Route: 042
  6. METHOTREXATE [Concomitant]
     Dosage: 8 MG PER WEEK
  7. METHOTREXATE [Concomitant]
     Dosage: 8 MG PER WEEK
  8. PREDONINE [Concomitant]
     Route: 049
  9. LIMETHASON [Concomitant]
  10. DECADRON [Concomitant]
  11. VOLTAREN [Concomitant]
     Route: 054
  12. MILTAX [Concomitant]
  13. FOLIAMIN [Concomitant]
     Route: 049
  14. ALFAROL [Concomitant]
     Route: 049
  15. BAYASPIRIN [Concomitant]
     Route: 049
  16. FAMOGAST [Concomitant]
     Route: 049
  17. CYTOTEC [Concomitant]
     Route: 049
  18. SELBEX [Concomitant]
     Route: 049
  19. JUVELA [Concomitant]
     Route: 049
  20. THIATON [Concomitant]
     Route: 049
  21. FERROMIA [Concomitant]
     Route: 049
  22. TALIN [Concomitant]
     Route: 049
  23. GATIFLO [Concomitant]
     Route: 049
  24. PL [Concomitant]
     Route: 049
  25. SENEGA [Concomitant]
     Route: 049
  26. APRICOT KEMEL WATER [Concomitant]
     Route: 049
  27. SIMPLE SYRUP [Concomitant]
  28. CODEINE SYRUP [Concomitant]
     Route: 049
  29. ANPLAG [Concomitant]
     Route: 049
  30. NIPOLAZIN [Concomitant]
     Route: 049
  31. LIPLE [Concomitant]
     Route: 042
  32. DOMER [Concomitant]
     Route: 049

REACTIONS (7)
  - HEADACHE [None]
  - INFLAMMATION [None]
  - LABORATORY TEST ABNORMAL [None]
  - RAYNAUD'S PHENOMENON [None]
  - SKIN DISCOLOURATION [None]
  - SKIN ULCER [None]
  - VASCULITIS [None]
